FAERS Safety Report 17643697 (Version 2)
Quarter: 2020Q2

REPORT INFORMATION
  Report Type: Spontaneous
  Country: FI (occurrence: FI)
  Receive Date: 20200408
  Receipt Date: 20200501
  Transmission Date: 20200713
  Serious: Yes (Other)
  Sender: FDA-Public Use
  Company Number: FI-ELI_LILLY_AND_COMPANY-FI202004000103

PATIENT
  Age: 70 Year
  Sex: Female

DRUGS (1)
  1. FORSTEO 250UG/ML [Suspect]
     Active Substance: TERIPARATIDE
     Indication: OSTEOPOROSIS
     Dosage: UNK, UNKNOWN
     Route: 065
     Dates: end: 201910

REACTIONS (3)
  - Anaemia [Not Recovered/Not Resolved]
  - Procedural haemorrhage [Unknown]
  - Back disorder [Unknown]

NARRATIVE: CASE EVENT DATE: 201906
